FAERS Safety Report 5832221-5 (Version None)
Quarter: 2008Q3

REPORT INFORMATION
  Report Type: 
  Country: None (occurrence: None)
  Receive Date: 20080804
  Receipt Date: 20080729
  Transmission Date: 20090109
  Serious: Yes (Death, Hospitalization)
  Sender: FDA-Public Use
  Company Number: JP-BRISTOL-MYERS SQUIBB COMPANY-14286652

PATIENT
  Age: 37 Year
  Sex: Male

DRUGS (3)
  1. EFAVIRENZ [Suspect]
     Indication: HIV INFECTION
     Route: 048
     Dates: start: 20050113, end: 20071107
  2. EPIVIR [Suspect]
     Indication: HIV INFECTION
     Dosage: FORM = TAB
     Route: 048
     Dates: start: 20050113, end: 20071107
  3. VIREAD [Suspect]
     Indication: HIV INFECTION
     Dosage: FORM = TAB
     Route: 048
     Dates: start: 20050113, end: 20071107

REACTIONS (2)
  - ASTHMA [None]
  - DEATH [None]
